FAERS Safety Report 14939880 (Version 1)
Quarter: 2018Q2

REPORT INFORMATION
  Report Type: Spontaneous
  Country: US (occurrence: US)
  Receive Date: 20180507
  Receipt Date: 20180507
  Transmission Date: 20180711
  Serious: No
  Sender: FDA-Public Use
  Company Number: None

PATIENT
  Age: 63 Year
  Sex: Male

DRUGS (1)
  1. AFINITOR [Suspect]
     Active Substance: EVEROLIMUS

REACTIONS (4)
  - Dizziness [None]
  - Myalgia [None]
  - Abnormal dreams [None]
  - Contusion [None]

NARRATIVE: CASE EVENT DATE: 20180428
